FAERS Safety Report 8444112-4 (Version None)
Quarter: 2012Q2

REPORT INFORMATION
  Report Type: 
  Country: None (occurrence: None)
  Receive Date: 20120618
  Receipt Date: 20120606
  Transmission Date: 20120825
  Serious: Yes (Other)
  Sender: FDA-Public Use
  Company Number: IR-COVIDIEN/TYCO HEALTHCARE/MALLINCKRODT-T201202500

PATIENT
  Age: 30 Month
  Sex: Male

DRUGS (1)
  1. METHADONE HCL [Suspect]
     Dosage: 5 MG, SINGLE

REACTIONS (2)
  - ENCEPHALOPATHY [None]
  - HYDROCEPHALUS [None]
